FAERS Safety Report 7478785-X (Version None)
Quarter: 2011Q2

REPORT INFORMATION
  Report Type: 
  Country: None (occurrence: None)
  Receive Date: 20110513
  Receipt Date: 20110505
  Transmission Date: 20111010
  Serious: Yes (Hospitalization)
  Sender: FDA-Public Use
  Company Number: BR-MEDIMMUNE-MEDI-0013172

PATIENT
  Sex: Female
  Weight: 7.11 kg

DRUGS (6)
  1. ASPIRIN [Concomitant]
     Dosage: 1 TAB DILUTED IN 10ML OF WATER, 4ML A DAY
     Route: 048
  2. CAPTOPRIL [Concomitant]
     Route: 048
  3. SYNAGIS [Suspect]
     Route: 030
     Dates: start: 20100901, end: 20100901
  4. POLIVITAMIN [Concomitant]
     Route: 048
  5. MOTILIUM [Concomitant]
     Route: 048
  6. RANITIDINE [Concomitant]
     Route: 048

REACTIONS (6)
  - INFECTION [None]
  - NASOPHARYNGITIS [None]
  - PNEUMONIA [None]
  - POSTOPERATIVE WOUND INFECTION [None]
  - PYREXIA [None]
  - DEPRESSED MOOD [None]
